FAERS Safety Report 13493006 (Version 3)
Quarter: 2017Q2

REPORT INFORMATION
  Report Type: Spontaneous
  Country: JP (occurrence: JP)
  Receive Date: 20170427
  Receipt Date: 20170614
  Transmission Date: 20170830
  Serious: Yes (Death, Other)
  Sender: FDA-Public Use
  Company Number: JP-SUN PHARMACEUTICAL INDUSTRIES LTD-2017RR-139098

PATIENT
  Age: 51 Year
  Sex: Male

DRUGS (16)
  1. OXALIPLATIN. [Suspect]
     Active Substance: OXALIPLATIN
     Indication: METASTASIS
     Dosage: 85 MG/M2, ON DAY 1
     Route: 042
  2. CALCIUM FOLINAT [Suspect]
     Active Substance: LEUCOVORIN CALCIUM
     Indication: METASTASIS
     Dosage: 200 MG/M2, ON DAY 1
     Route: 042
  3. FLUOROURACIL. [Suspect]
     Active Substance: FLUOROURACIL
     Indication: METASTASIS
     Dosage: 2400 MG/M2, CONTINUOUS INFUSION; OVER 46 HOURS
     Route: 065
  4. OXALIPLATIN. [Suspect]
     Active Substance: OXALIPLATIN
     Indication: COLORECTAL CANCER
     Dosage: ON DAY 1
     Route: 042
  5. CALCIUM FOLINAT [Suspect]
     Active Substance: LEUCOVORIN CALCIUM
     Indication: COLORECTAL CANCER
     Dosage: 200 MG/M2, ON DAY 1
     Route: 042
  6. IRINOTECAN [Suspect]
     Active Substance: IRINOTECAN
     Indication: COLORECTAL CANCER
     Dosage: 150 MG/M2, ON DAY 1
     Route: 042
  7. IRINOTECAN [Suspect]
     Active Substance: IRINOTECAN
     Indication: METASTASIS
  8. FLUOROURACIL. [Suspect]
     Active Substance: FLUOROURACIL
     Indication: METASTASIS
     Dosage: 400 MG/M2, OVER 46 HOURS
     Route: 040
  9. CETUXIMAB. [Suspect]
     Active Substance: CETUXIMAB
     Indication: COLORECTAL CANCER
     Dosage: 400 MG/M2, 17 CYCLES
     Route: 042
  10. BEVACIZUMAB [Suspect]
     Active Substance: BEVACIZUMAB
     Indication: COLORECTAL CANCER
     Dosage: 5 MG/KG, EVERY 2 WEEKS
     Route: 042
  11. PANITUMUMAB [Suspect]
     Active Substance: PANITUMUMAB
     Indication: COLORECTAL CANCER
     Dosage: REPEATED EVERY 2 WEEKS
     Route: 042
  12. PANITUMUMAB [Suspect]
     Active Substance: PANITUMUMAB
     Indication: METASTASIS
     Dosage: 6 MG/KG, REPEATED EVERY 2 WEEKS
     Route: 042
  13. FLUOROURACIL. [Suspect]
     Active Substance: FLUOROURACIL
     Indication: COLORECTAL CANCER
     Dosage: 2400 MG/M2, CONTINUOUS INFUSION; OVER 46 HOURS
     Route: 065
  14. CETUXIMAB. [Suspect]
     Active Substance: CETUXIMAB
     Indication: METASTASIS
     Dosage: 250 MG/M2, WEEKLY
  15. FLUOROURACIL. [Suspect]
     Active Substance: FLUOROURACIL
     Indication: COLORECTAL CANCER
     Dosage: 400 MG/M2, OVER 46 HOURS
     Route: 040
  16. BEVACIZUMAB [Suspect]
     Active Substance: BEVACIZUMAB
     Indication: METASTASIS

REACTIONS (9)
  - Anaemia [Unknown]
  - Platelet count decreased [Unknown]
  - Neuropathy peripheral [Recovering/Resolving]
  - Hypomagnesaemia [Unknown]
  - Neutrophil count decreased [Unknown]
  - Disease progression [Fatal]
  - Fatigue [Recovering/Resolving]
  - Paronychia [Unknown]
  - Rash [Recovering/Resolving]
